FAERS Safety Report 6263114-X (Version None)
Quarter: 2009Q3

REPORT INFORMATION
  Report Type: 
  Country: None (occurrence: None)
  Receive Date: 20090708
  Receipt Date: 20090708
  Transmission Date: 20100115
  Serious: Yes (Other)
  Sender: FDA-Public Use
  Company Number: None

PATIENT
  Sex: Female
  Weight: 73.9363 kg

DRUGS (1)
  1. BYSTOLIC [Suspect]
     Indication: BLOOD PRESSURE
     Dosage: 5MG 1 X
     Dates: start: 20090408

REACTIONS (5)
  - DEPRESSION [None]
  - HEART RATE IRREGULAR [None]
  - INSOMNIA [None]
  - PARAESTHESIA [None]
  - VISUAL IMPAIRMENT [None]
